FAERS Safety Report 4999445-0 (Version None)
Quarter: 2006Q2

REPORT INFORMATION
  Report Type: 
  Country: None (occurrence: None)
  Receive Date: 20060509
  Receipt Date: 20060509
  Transmission Date: 20061013
  Serious: Yes (Life-Threatening, Hospitalization)
  Sender: FDA-Public Use
  Company Number: None

PATIENT
  Sex: Female
  Weight: 42.5 kg

DRUGS (20)
  1. LETROZOLE [Suspect]
     Indication: BREAST CANCER
     Dosage: 2.5MG PO DAILY
     Route: 048
     Dates: start: 20051225, end: 20051227
  2. ALPRAZOLAM [Concomitant]
  3. AZTREONAM [Concomitant]
  4. CALCIUM CARBONATE [Concomitant]
  5. DIGOXIN [Concomitant]
  6. HYDROCORTISONE [Concomitant]
  7. LANSOPRAZOLE [Concomitant]
  8. LOVOFLOXACIN [Concomitant]
  9. MAGNESIUM OXIDE [Concomitant]
  10. METOPROLOL TARTRATE [Concomitant]
  11. METRONIDAZOLE [Concomitant]
  12. MULTIVITAMIN [Concomitant]
  13. NYSTATIN [Concomitant]
  14. PROMETHAZINE [Concomitant]
  15. VANCOMYCIN [Concomitant]
  16. AMIODARONE HCL [Concomitant]
  17. ESMOLOL HCL [Concomitant]
  18. PHENYLEPHRINE [Concomitant]
  19. VASOPRESSIN [Concomitant]
  20. LEPIRUDIN [Concomitant]

REACTIONS (5)
  - BRADYCARDIA [None]
  - HAEMODIALYSIS [None]
  - INTESTINAL ISCHAEMIA [None]
  - ISCHAEMIA [None]
  - MESENTERIC VEIN THROMBOSIS [None]
